FAERS Safety Report 17333312 (Version 1)
Quarter: 2020Q1

REPORT INFORMATION
  Report Type: Report from Study
  Country: US (occurrence: US)
  Receive Date: 20200128
  Receipt Date: 20200128
  Transmission Date: 20200409
  Serious: Yes (Hospitalization)
  Sender: FDA-Public Use
  Company Number: US-ACTELION-A-NJ2019-194210

PATIENT
  Age: 83 Year
  Sex: Male
  Weight: 114.74 kg

DRUGS (2)
  1. OPSUMIT [Suspect]
     Active Substance: MACITENTAN
     Indication: PULMONARY ARTERIAL HYPERTENSION
     Dosage: 10 MG, QD
     Route: 048
     Dates: start: 20190702
  2. TADALAFIL. [Concomitant]
     Active Substance: TADALAFIL

REACTIONS (10)
  - Pulmonary hypertension [Unknown]
  - Therapy non-responder [Unknown]
  - Nasal congestion [Unknown]
  - Fibrosis [Unknown]
  - Constipation [Unknown]
  - Sinus congestion [Unknown]
  - Hip arthroplasty [Unknown]
  - Dyspnoea [Unknown]
  - Cough [Unknown]
  - Dyspnoea exertional [Not Recovered/Not Resolved]

NARRATIVE: CASE EVENT DATE: 201909
